FAERS Safety Report 6069975-1 (Version None)
Quarter: 2009Q1

REPORT INFORMATION
  Report Type: 
  Country: None (occurrence: None)
  Receive Date: 20090128
  Receipt Date: 20090115
  Transmission Date: 20090719
  Serious: Yes (Death)
  Sender: FDA-Public Use
  Company Number: THYM-1000882

PATIENT
  Age: 62 Year
  Sex: Male

DRUGS (6)
  1. THYMOGLOBULIN [Suspect]
     Indication: RENAL TRANSPLANT
     Dosage: 100 MG, QD, INTRAVENOUS
     Route: 042
     Dates: start: 20080711, end: 20080712
  2. OCTAPLEX (FACTOR IX) [Suspect]
     Indication: RENAL TRANSPLANT
     Dosage: INTRAVENOUS
     Route: 042
     Dates: start: 20080711
  3. SOLU-MEDROL [Concomitant]
  4. POLARAMINE (CHLORPHENAMINE MALEATE) [Concomitant]
  5. KEFANDOL (CEFAMANDOLE) [Concomitant]
  6. TAZOCILLINE (PIPERACILLIN SODIUM, TAZOBACTAM SODIUM) [Concomitant]

REACTIONS (13)
  - ANAPHYLACTIC SHOCK [None]
  - ANURIA [None]
  - BRADYCARDIA [None]
  - CARDIO-RESPIRATORY ARREST [None]
  - COAGULOPATHY [None]
  - HAEMOGLOBIN DECREASED [None]
  - HAEMORRHAGE [None]
  - HYPERKALAEMIA [None]
  - HYPOTENSION [None]
  - HYPOVOLAEMIA [None]
  - NEUROLOGICAL DECOMPENSATION [None]
  - PULMONARY EMBOLISM [None]
  - RENAL TRANSPLANT [None]
